FAERS Safety Report 12696784 (Version 3)
Quarter: 2016Q4

REPORT INFORMATION
  Report Type: Spontaneous
  Country: US (occurrence: US)
  Receive Date: 20160830
  Receipt Date: 20161101
  Transmission Date: 20170207
  Serious: No
  Sender: FDA-Public Use
  Company Number: US-ASTRAZENECA-2016SE89664

PATIENT
  Age: 21479 Day
  Sex: Male

DRUGS (1)
  1. TUDORZA PRESSAIR [Suspect]
     Active Substance: ACLIDINIUM BROMIDE
     Route: 055
     Dates: end: 20160817

REACTIONS (4)
  - Drug dose omission [Unknown]
  - Device issue [Unknown]
  - Anger [Unknown]
  - Malaise [Unknown]

NARRATIVE: CASE EVENT DATE: 20160817
